FAERS Safety Report 11777867 (Version 1)
Quarter: 2015Q4

REPORT INFORMATION
  Report Type: Spontaneous
  Country: US (occurrence: US)
  Receive Date: 20151125
  Receipt Date: 20151125
  Transmission Date: 20160304
  Serious: Yes (Other)
  Sender: FDA-Public Use
  Company Number: US-BANPHARM-20154417

PATIENT
  Age: 60 Year
  Sex: Male

DRUGS (1)
  1. BEXAROTENE 75 MG [Suspect]
     Active Substance: BEXAROTENE
     Indication: MYCOSIS FUNGOIDES
     Dosage: 450 MG, QD,
     Route: 048
     Dates: start: 201508, end: 20151106

REACTIONS (3)
  - Drug ineffective [Unknown]
  - Product substitution issue [None]
  - Neoplasm progression [Not Recovered/Not Resolved]
